FAERS Safety Report 9168779 (Version 1)
Quarter: 2013Q1

REPORT INFORMATION
  Report Type: Spontaneous
  Country: BR (occurrence: BR)
  Receive Date: 20130318
  Receipt Date: 20130318
  Transmission Date: 20140127
  Serious: Yes (Other)
  Sender: FDA-Public Use
  Company Number: BR-ASTRAZENECA-2013SE15679

PATIENT
  Sex: Female

DRUGS (1)
  1. DIPRIVAN [Suspect]
     Indication: APPENDICECTOMY
     Route: 042

REACTIONS (1)
  - Device failure [Recovered/Resolved]
